FAERS Safety Report 4755704-8 (Version None)
Quarter: 2005Q3

REPORT INFORMATION
  Report Type: 
  Country: None (occurrence: None)
  Receive Date: 20050830
  Receipt Date: 20050711
  Transmission Date: 20060218
  Serious: No
  Sender: FDA-Public Use
  Company Number: US-BRISTOL-MYERS SQUIBB COMPANY-13031687

PATIENT
  Sex: Female
  Weight: 77 kg

DRUGS (4)
  1. ABILIFY [Suspect]
     Indication: ANGER
     Dosage: DOSE = ^ONE TO TWO TABLETS DAILY^
     Route: 048
     Dates: start: 20050630, end: 20050708
  2. DEPO-PROVERA [Concomitant]
     Dates: start: 20040901
  3. EFFEXOR [Concomitant]
  4. TRAZODONE HCL [Concomitant]
     Dates: start: 20050301

REACTIONS (2)
  - FATIGUE [None]
  - MUSCULAR WEAKNESS [None]
